FAERS Safety Report 21088785 (Version 3)
Quarter: 2022Q3

REPORT INFORMATION
  Report Type: Report from Study
  Country: DE (occurrence: DE)
  Receive Date: 20220715
  Receipt Date: 20220727
  Transmission Date: 20221027
  Serious: Yes (Death, Hospitalization)
  Sender: FDA-Public Use
  Company Number: DE-PFIZER INC-PV202200019037

PATIENT
  Age: 81 Year
  Sex: Female
  Weight: 77 kg

DRUGS (12)
  1. PALBOCICLIB [Suspect]
     Active Substance: PALBOCICLIB
     Indication: Breast cancer
     Dosage: 125 MG, CYCLIC (DAILY FROM DAY 1 TO DAY 21 EVERY 28-DAY CYCLE)
     Route: 048
     Dates: start: 20220615, end: 20220705
  2. ANASTROZOLE [Suspect]
     Active Substance: ANASTROZOLE
     Indication: Breast cancer
     Dosage: 1 MG, DAILY
     Route: 048
     Dates: start: 20220615, end: 20220711
  3. RAMIPRIL [Concomitant]
     Active Substance: RAMIPRIL
     Indication: Hypertonia
     Dosage: UNK
     Route: 048
  4. NEBIVOLOL [Concomitant]
     Active Substance: NEBIVOLOL
     Indication: Hypertonia
     Dosage: UNK
     Route: 048
  5. CHOLECALCIFEROL [Concomitant]
     Active Substance: CHOLECALCIFEROL
     Indication: Prophylaxis
     Dosage: UNK
     Route: 048
  6. SIMVASTATIN [Concomitant]
     Active Substance: SIMVASTATIN
     Indication: Hyperlipidaemia
     Dosage: UNK
     Route: 048
  7. NEBIVOLOL [Concomitant]
     Active Substance: NEBIVOLOL
     Indication: Hypertonia
     Dosage: UNK
     Route: 048
  8. AMLODIPINE [Concomitant]
     Active Substance: AMLODIPINE BESYLATE
     Indication: Hypertonia
     Dosage: UNK
     Route: 048
  9. METFORMIN HYDROCHLORIDE [Concomitant]
     Active Substance: METFORMIN HYDROCHLORIDE
     Indication: Diabetes mellitus
     Dosage: UNK
     Route: 048
  10. QUETIAPIN HEMIFUMARAT [Concomitant]
     Indication: Prophylaxis
     Dosage: UNK
     Route: 048
  11. TORSEMIDE [Concomitant]
     Active Substance: TORSEMIDE
     Indication: Oedema peripheral
     Dosage: UNK
     Route: 048
  12. PANTOPRAZOLE [Concomitant]
     Active Substance: PANTOPRAZOLE
     Indication: Prophylaxis
     Dosage: UNK
     Route: 048

REACTIONS (1)
  - General physical health deterioration [Fatal]

NARRATIVE: CASE EVENT DATE: 20220707
